FAERS Safety Report 8537006 (Version 2)
Quarter: 2013Q3

REPORT INFORMATION
  Report Type: Spontaneous
  Country: US (occurrence: US)
  Receive Date: 20120430
  Receipt Date: 20130919
  Transmission Date: 20140515
  Serious: Yes (Hospitalization)
  Sender: FDA-Public Use
  Company Number: US-B.I. PHARMACEUTICALS,INC./RIDGEFIELD-2012-BP-09366BP

PATIENT
  Age: 65 Year
  Sex: Male

DRUGS (14)
  1. SPIRIVA HANDIHALER [Suspect]
     Indication: CHRONIC OBSTRUCTIVE PULMONARY DISEASE
     Route: 055
     Dates: start: 201111
  2. SPIRIVA HANDIHALER [Suspect]
     Dosage: 18 MCG
     Route: 055
     Dates: start: 2012
  3. ADVAIR [Concomitant]
     Indication: CHRONIC OBSTRUCTIVE PULMONARY DISEASE
     Route: 055
  4. ADVAIR [Concomitant]
     Route: 055
     Dates: start: 2005
  5. AVODART [Concomitant]
     Indication: BENIGN PROSTATIC HYPERPLASIA
     Dosage: 5.7143 MG
     Route: 048
  6. CRESTOR [Concomitant]
     Indication: BLOOD CHOLESTEROL INCREASED
     Dosage: 10 MG
     Route: 048
  7. ECOTRIN [Concomitant]
     Indication: SUPPLEMENTATION THERAPY
     Dosage: 81 MG
     Route: 048
  8. FISH OIL [Concomitant]
     Indication: SUPPLEMENTATION THERAPY
     Dosage: 1000 MG
     Route: 048
  9. LISINOPRIL [Concomitant]
     Indication: HYPERTENSION
     Dosage: 10 MG
     Route: 048
  10. MULTIVITAMIN [Concomitant]
     Indication: SUPPLEMENTATION THERAPY
     Route: 048
  11. SINGULAIR [Concomitant]
     Indication: CHRONIC OBSTRUCTIVE PULMONARY DISEASE
     Dosage: 10 MG
     Route: 048
  12. UROXATRAL [Concomitant]
     Indication: BENIGN PROSTATIC HYPERPLASIA
     Dosage: 10 MG
     Route: 048
  13. ZEGERID [Concomitant]
     Indication: GASTROOESOPHAGEAL REFLUX DISEASE
     Route: 048
  14. ASPIRIN [Concomitant]
     Route: 048

REACTIONS (5)
  - Pneumonia bacterial [Not Recovered/Not Resolved]
  - Testicular pain [Not Recovered/Not Resolved]
  - Prostatic disorder [Recovered/Resolved]
  - Extrapyramidal disorder [Not Recovered/Not Resolved]
  - Prostatic disorder [Not Recovered/Not Resolved]
